FAERS Safety Report 9586184 (Version 1)
Quarter: 2013Q4

REPORT INFORMATION
  Report Type: Spontaneous
  Country: US (occurrence: None)
  Receive Date: 20131002
  Receipt Date: 20131002
  Transmission Date: 20140711
  Serious: Yes (Other)
  Sender: FDA-Public Use
  Company Number: None

PATIENT
  Age: 35 Year
  Sex: Female
  Weight: 58.97 kg

DRUGS (1)
  1. CETIRIZINE HYDROCHLORIDE [Suspect]
     Indication: HYPERSENSITIVITY
     Dates: start: 20130915, end: 20130929

REACTIONS (6)
  - Abdominal pain upper [None]
  - Abdominal distension [None]
  - Flatulence [None]
  - Eructation [None]
  - Pain [None]
  - Muscle spasms [None]
